FAERS Safety Report 6180711-0 (Version None)
Quarter: 2009Q2

REPORT INFORMATION
  Report Type: 
  Country: None (occurrence: None)
  Receive Date: 20090506
  Receipt Date: 20090428
  Transmission Date: 20091009
  Serious: Yes (Death)
  Sender: FDA-Public Use
  Company Number: US-ROCHE-629328

PATIENT
  Sex: Male
  Weight: 76.7 kg

DRUGS (10)
  1. CAPECITABINE [Suspect]
     Indication: COLON CANCER
     Dosage: DISCONTINUED BEFORE 20 MAR 2009
     Route: 048
     Dates: start: 20090218
  2. COMPAZINE [Concomitant]
  3. OXALIPLATIN [Concomitant]
     Route: 042
  4. METOPROLOL SUCCINATE [Concomitant]
     Indication: BLOOD PRESSURE
  5. LUNESTA [Concomitant]
     Indication: SOMNOLENCE
  6. INSULIN [Concomitant]
     Dosage: DRUG REPORTED: INSULIN (LANTUS/ HUMALOG)
  7. PROTONIX [Concomitant]
  8. ZOCOR [Concomitant]
     Indication: BLOOD CHOLESTEROL ABNORMAL
  9. CLONIDINE [Concomitant]
     Dosage: TAKEN ONLY WITH BLOOD PRESSURE
  10. LORA TAB [Concomitant]
     Indication: PAIN
     Dosage: UNKNOWN DOSAGE

REACTIONS (3)
  - COLON CANCER METASTATIC [None]
  - DIARRHOEA [None]
  - RENAL FAILURE ACUTE [None]
